FAERS Safety Report 9436054 (Version 3)
Quarter: 2013Q3

REPORT INFORMATION
  Report Type: Report from Study
  Country: FR (occurrence: FR)
  Receive Date: 20130801
  Receipt Date: 20130911
  Transmission Date: 20140515
  Serious: Yes (Congenital Anomaly)
  Sender: FDA-Public Use
  Company Number: FR-B.I. PHARMACEUTICALS,INC./RIDGEFIELD-2013-BI-22462BP

PATIENT
  Sex: Female
  Weight: 2.78 kg

DRUGS (3)
  1. VIRAMUNE [Suspect]
     Indication: EXPOSURE DURING PREGNANCY
     Route: 064
  2. RETROVIR [Concomitant]
     Indication: EXPOSURE DURING PREGNANCY
     Route: 064
     Dates: start: 20130615, end: 20130615
  3. TRUVADA [Concomitant]
     Indication: EXPOSURE DURING PREGNANCY
     Route: 064

REACTIONS (1)
  - Muscle disorder [Unknown]
